FAERS Safety Report 6176207-2 (Version None)
Quarter: 2009Q2

REPORT INFORMATION
  Report Type: 
  Country: None (occurrence: None)
  Receive Date: 20090501
  Receipt Date: 20090424
  Transmission Date: 20091009
  Serious: Yes (Hospitalization)
  Sender: FDA-Public Use
  Company Number: A0766633A

PATIENT
  Age: 43 Year
  Sex: Male
  Weight: 81.8 kg

DRUGS (11)
  1. AVANDIA [Suspect]
     Dosage: 8MG PER DAY
     Route: 065
     Dates: start: 20061024, end: 20070924
  2. AVANDAMET [Suspect]
     Indication: DRUG USE FOR UNKNOWN INDICATION
     Route: 065
     Dates: start: 20061001, end: 20070801
  3. AVANDARYL [Suspect]
     Indication: DRUG USE FOR UNKNOWN INDICATION
     Route: 065
     Dates: start: 20061001, end: 20070801
  4. HUMALOG [Concomitant]
     Dates: start: 20060101
  5. LIPITOR [Concomitant]
     Dates: start: 20060601
  6. RISPERDAL [Concomitant]
     Dates: start: 20060101
  7. LITHIUM CARBONATE [Concomitant]
     Dates: start: 20060101, end: 20070801
  8. EFFEXOR [Concomitant]
     Dates: start: 20060901
  9. OXYCODONE [Concomitant]
     Indication: PAIN
  10. LIPITOR [Concomitant]
  11. FLOMAX [Concomitant]
     Indication: MICTURITION DISORDER

REACTIONS (5)
  - ANXIETY [None]
  - CARDIAC DISORDER [None]
  - CARDIOVASCULAR DISORDER [None]
  - MYOCARDIAL INFARCTION [None]
  - MYOCARDIAL ISCHAEMIA [None]
